FAERS Safety Report 4889431-3 (Version None)
Quarter: 2006Q1

REPORT INFORMATION
  Report Type: 
  Country: None (occurrence: None)
  Receive Date: 20060124
  Receipt Date: 20030214
  Transmission Date: 20060701
  Serious: Yes (Other)
  Sender: FDA-Public Use
  Company Number: PHNU2003DE00996

PATIENT
  Age: 75 Year
  Sex: Female

DRUGS (3)
  1. FORADIL [Suspect]
     Indication: ASTHMA
     Dosage: UNKNOWN
     Dates: start: 20030114
  2. FORADIL [Suspect]
     Indication: ASTHMA
     Dosage: UNKNOWN
  3. FORADIL [Suspect]
     Dosage: UNKNOWN

REACTIONS (9)
  - ASTHMA [None]
  - BLOOD PRESSURE INCREASED [None]
  - CHEST DISCOMFORT [None]
  - DRUG INEFFECTIVE [None]
  - DRUG INTOLERANCE [None]
  - DYSPNOEA [None]
  - GENERAL PHYSICAL CONDITION ABNORMAL [None]
  - HEART RATE INCREASED [None]
  - MALAISE [None]
